FAERS Safety Report 9680093 (Version 3)
Quarter: 2014Q1

REPORT INFORMATION
  Report Type: Spontaneous
  Country: US (occurrence: US)
  Receive Date: 20131111
  Receipt Date: 20140103
  Transmission Date: 20141002
  Serious: Yes (Life-Threatening, Hospitalization, Disabling, Other)
  Sender: FDA-Public Use
  Company Number: US-MERCK-1311USA002467

PATIENT
  Sex: Male
  Weight: 92.52 kg

DRUGS (5)
  1. JANUVIA [Suspect]
     Indication: TYPE 2 DIABETES MELLITUS
     Dosage: 100 MG, QD
     Route: 048
     Dates: start: 20121119, end: 20121226
  2. JANUVIA [Suspect]
     Dosage: 100 MG, QD
     Route: 048
     Dates: start: 20130923, end: 20131105
  3. VICTOZA [Suspect]
     Indication: TYPE 2 DIABETES MELLITUS
     Dosage: UNK
     Dates: start: 201305, end: 201307
  4. GLIMEPIRIDE [Concomitant]
     Indication: DIABETES MELLITUS
     Dosage: 4 MG, BID
     Dates: end: 20121126
  5. METFORMIN [Concomitant]
     Indication: TYPE 2 DIABETES MELLITUS
     Dosage: 1000 MG, BID
     Dates: start: 20121126, end: 20131105

REACTIONS (14)
  - Pancreatic carcinoma metastatic [Not Recovered/Not Resolved]
  - Basal cell carcinoma [Unknown]
  - Calcinosis [Unknown]
  - Diabetes mellitus inadequate control [Recovering/Resolving]
  - Fungal infection [Unknown]
  - Nervous system disorder [Unknown]
  - Chromaturia [Unknown]
  - Hydrocele operation [Unknown]
  - Oedema peripheral [Not Recovered/Not Resolved]
  - Hypotension [Unknown]
  - Weight decreased [Unknown]
  - Nausea [Unknown]
  - Pain in extremity [Unknown]
  - Constipation [Unknown]
